FAERS Safety Report 10227521 (Version 1)
Quarter: 2014Q2

REPORT INFORMATION
  Report Type: Spontaneous
  Country: US (occurrence: US)
  Receive Date: 20140610
  Receipt Date: 20140610
  Transmission Date: 20141212
  Serious: No
  Sender: FDA-Public Use
  Company Number: US-VIIV HEALTHCARE LIMITED-A1070531A

PATIENT
  Age: 24 Year
  Sex: Male

DRUGS (2)
  1. TIVICAY [Suspect]
     Indication: PRODUCT USED FOR UNKNOWN INDICATION
     Dosage: 50MG UNKNOWN
     Route: 065
     Dates: start: 20140131
  2. EPZICOM [Concomitant]

REACTIONS (1)
  - Treatment noncompliance [Unknown]
